FAERS Safety Report 4394255-X (Version None)
Quarter: 2004Q3

REPORT INFORMATION
  Report Type: 
  Country: None (occurrence: None)
  Receive Date: 20040707
  Receipt Date: 20040624
  Transmission Date: 20050211
  Serious: Yes (Other)
  Sender: FDA-Public Use
  Company Number: 200413003BCC

PATIENT
  Age: 67 Year
  Sex: Female
  Weight: 68.0396 kg

DRUGS (2)
  1. ALEVE [Suspect]
     Indication: ARTHRITIS
     Dosage: 220 MG, ONCE, ORAL
     Route: 048
     Dates: start: 20040616
  2. LEVOXYL [Concomitant]

REACTIONS (8)
  - ABDOMINAL PAIN UPPER [None]
  - BLOOD PRESSURE SYSTOLIC INCREASED [None]
  - CHEST PAIN [None]
  - COLD SWEAT [None]
  - DIZZINESS [None]
  - NAUSEA [None]
  - OESOPHAGEAL PAIN [None]
  - VOMITING [None]
